FAERS Safety Report 12658425 (Version 1)
Quarter: 2016Q3

REPORT INFORMATION
  Report Type: Spontaneous
  Country: GB (occurrence: GB)
  Receive Date: 20160817
  Receipt Date: 20160817
  Transmission Date: 20161109
  Serious: Yes (Life-Threatening, Hospitalization)
  Sender: FDA-Public Use
  Company Number: GB-ACCORD-043222

PATIENT
  Age: 79 Year
  Sex: Female
  Weight: 75.3 kg

DRUGS (12)
  1. LANSOPRAZOLE. [Concomitant]
     Active Substance: LANSOPRAZOLE
  2. FUROSEMIDE. [Concomitant]
     Active Substance: FUROSEMIDE
  3. COLECALCIFEROL [Concomitant]
     Active Substance: CHOLECALCIFEROL
  4. ALENDRONATE SODIUM/ALENDRONIC ACID [Concomitant]
  5. CITALOPRAM/CITALOPRAM HYDROBROMIDE/CITALOPRAM HYDROCHLORIDE [Concomitant]
  6. PARACETAMOL [Concomitant]
     Active Substance: ACETAMINOPHEN
     Dosage: FOUR TIMES A DAY.
  7. IBUPROFEN. [Concomitant]
     Active Substance: IBUPROFEN
  8. FOLIC ACID. [Concomitant]
     Active Substance: FOLIC ACID
  9. ACIDEX [Concomitant]
     Active Substance: CALCIUM CARBONATE\SODIUM ALGINATE\SODIUM BICARBONATE
     Dosage: FOUR TIMES A DAY.
  10. METHOTREXATE. [Suspect]
     Active Substance: METHOTREXATE
     Indication: POLYMYALGIA RHEUMATICA
     Route: 048
     Dates: start: 201606, end: 201607
  11. PREDNISOLONE. [Concomitant]
     Active Substance: PREDNISOLONE
  12. TIMOLOL. [Concomitant]
     Active Substance: TIMOLOL
     Dosage: BOTH EYES
     Route: 047

REACTIONS (1)
  - Traumatic lung injury [Not Recovered/Not Resolved]

NARRATIVE: CASE EVENT DATE: 20160713
